FAERS Safety Report 8046905-4 (Version None)
Quarter: 2012Q1

REPORT INFORMATION
  Report Type: 
  Country: None (occurrence: None)
  Receive Date: 20120116
  Receipt Date: 20120104
  Transmission Date: 20120608
  Serious: Yes (Other)
  Sender: FDA-Public Use
  Company Number: US-ELI_LILLY_AND_COMPANY-US201111004584

PATIENT
  Sex: Female

DRUGS (2)
  1. FORTEO [Suspect]
     Dosage: 20 UG, QD
  2. FORTEO [Suspect]
     Indication: OSTEOPOROSIS
     Dosage: 20 UG, QD

REACTIONS (10)
  - MALAISE [None]
  - INJECTION SITE PAIN [None]
  - DRUG DOSE OMISSION [None]
  - HYPOTENSION [None]
  - NASOPHARYNGITIS [None]
  - STRESS [None]
  - LOSS OF CONSCIOUSNESS [None]
  - SWOLLEN TONGUE [None]
  - ANXIETY [None]
  - INJECTION SITE HAEMATOMA [None]
